FAERS Safety Report 8921204 (Version 2)
Quarter: 2013Q2

REPORT INFORMATION
  Report Type: Spontaneous
  Country: JP (occurrence: JP)
  Receive Date: 20121123
  Receipt Date: 20130408
  Transmission Date: 20140414
  Serious: Yes (Other)
  Sender: FDA-Public Use
  Company Number: JP-SANOFI-AVENTIS-2012SA084983

PATIENT
  Age: 54 Year
  Sex: Male

DRUGS (8)
  1. LANTUS SOLOSTAR [Suspect]
     Indication: TYPE 2 DIABETES MELLITUS
     Dosage: DOSE:6 UNIT(S)
     Route: 058
     Dates: start: 20121013, end: 20121214
  2. SOLOSTAR [Suspect]
     Indication: DEVICE THERAPY
     Dates: start: 20121013, end: 20121214
  3. ADETPHOS [Concomitant]
     Indication: DIZZINESS
     Dates: start: 20110909
  4. HORIZON [Concomitant]
     Indication: DIZZINESS
     Dates: start: 20110909
  5. HORIZON [Concomitant]
     Indication: DEAFNESS
     Dates: start: 20110909
  6. GRANDAXIN [Concomitant]
     Indication: DEAFNESS
     Dates: start: 20110909
  7. SAWATENE [Concomitant]
     Indication: PHARYNGITIS
     Dates: start: 20110909
  8. ROSUVASTATIN CALCIUM [Concomitant]
     Indication: HYPERLIPIDAEMIA
     Dates: start: 20120831

REACTIONS (1)
  - Eye disorder [Recovered/Resolved]
